FAERS Safety Report 8299250 (Version 4)
Quarter: 2014Q4

REPORT INFORMATION
  Report Type: Spontaneous
  Country: US (occurrence: US)
  Receive Date: 20111219
  Receipt Date: 20141205
  Transmission Date: 20150529
  Serious: Yes (Disabling, Other)
  Sender: FDA-Public Use
  Company Number: US-ROCHE-1018134

PATIENT
  Age: 87 Year
  Sex: Male

DRUGS (1)
  1. LUCENTIS [Suspect]
     Active Substance: RANIBIZUMAB
     Indication: MACULAR DEGENERATION
     Dosage: DATE OF LAST DOSE PRIOR TO SAE: 06/OCT/2011
     Route: 050
     Dates: start: 20061116

REACTIONS (13)
  - Escherichia infection [Recovered/Resolved with Sequelae]
  - Retinal detachment [Recovered/Resolved with Sequelae]
  - Endophthalmitis [Recovered/Resolved with Sequelae]
  - Iris disorder [Recovered/Resolved]
  - Pupillary disorder [Recovered/Resolved]
  - Fibrosis [Recovered/Resolved]
  - Suspected transmission of an infectious agent via product [Unknown]
  - Retinal pallor [Recovered/Resolved]
  - Enterococcus test positive [Unknown]
  - Eye disorder [Recovered/Resolved]
  - Product quality issue [Unknown]
  - Blindness [Unknown]
  - Visual acuity reduced [Not Recovered/Not Resolved]

NARRATIVE: CASE EVENT DATE: 20111008
